FAERS Safety Report 13892461 (Version 1)
Quarter: 2017Q3

REPORT INFORMATION
  Report Type: Report from Study
  Country: AU (occurrence: AU)
  Receive Date: 20170822
  Receipt Date: 20170822
  Transmission Date: 20171127
  Serious: Yes (Hospitalization, Other)
  Sender: FDA-Public Use
  Company Number: PHHY2015AU167774

PATIENT
  Age: 53 Year
  Sex: Male
  Weight: 92 kg

DRUGS (3)
  1. TAFINLAR [Suspect]
     Active Substance: DABRAFENIB MESYLATE
     Indication: ERDHEIM-CHESTER DISEASE
     Dosage: 150 MG, BID
     Route: 048
     Dates: start: 20150416, end: 20150601
  2. TAFINLAR [Suspect]
     Active Substance: DABRAFENIB MESYLATE
     Dosage: 75 MG, BID
     Route: 048
     Dates: start: 20150601
  3. MEKINIST [Suspect]
     Active Substance: TRAMETINIB DIMETHYL SULFOXIDE
     Indication: ERDHEIM-CHESTER DISEASE
     Dosage: 2 MG, BID
     Route: 048
     Dates: start: 20160416

REACTIONS (5)
  - Pyrexia [Recovered/Resolved]
  - Subcutaneous abscess [Unknown]
  - Skin toxicity [Unknown]
  - Musculoskeletal pain [Recovered/Resolved]
  - Product use in unapproved indication [Unknown]

NARRATIVE: CASE EVENT DATE: 20150601
